FAERS Safety Report 5649235-0 (Version None)
Quarter: 2008Q1

REPORT INFORMATION
  Report Type: 
  Country: None (occurrence: None)
  Receive Date: 20080304
  Receipt Date: 20071126
  Transmission Date: 20080703
  Serious: No
  Sender: FDA-Public Use
  Company Number: US-BAYER-200715583NA

PATIENT
  Age: 38 Year
  Sex: Female
  Weight: 90 kg

DRUGS (2)
  1. ULTRAVIST 370 [Suspect]
     Indication: COMPUTERISED TOMOGRAM
     Dosage: TOTAL DAILY DOSE: 120 ML
     Route: 042
     Dates: start: 20071126, end: 20071126
  2. READI-CAT 2 [Concomitant]
     Indication: COMPUTERISED TOMOGRAM
     Route: 048
     Dates: start: 20071126, end: 20071126

REACTIONS (3)
  - PHARYNGEAL ERYTHEMA [None]
  - THROAT IRRITATION [None]
  - URTICARIA [None]
